FAERS Safety Report 13551093 (Version 2)
Quarter: 2017Q2

REPORT INFORMATION
  Report Type: Spontaneous
  Country: CA (occurrence: CA)
  Receive Date: 20170516
  Receipt Date: 20170517
  Transmission Date: 20170830
  Serious: Yes (Other)
  Sender: FDA-Public Use
  Company Number: CA-JNJFOC-20170509403

PATIENT

DRUGS (5)
  1. INFLIXIMAB, RECOMBINANT [Suspect]
     Active Substance: INFLIXIMAB
     Indication: ARTHRITIS
     Route: 042
  2. AZATHIOPRINE. [Concomitant]
     Active Substance: AZATHIOPRINE
     Dosage: BETWEEN 1.5 AND 2.5 MG/KG/DAY.
     Route: 065
  3. INFLIXIMAB, RECOMBINANT [Suspect]
     Active Substance: INFLIXIMAB
     Indication: UVEITIS
     Route: 042
  4. METHOTREXATE. [Concomitant]
     Active Substance: METHOTREXATE
     Route: 065
  5. LEFLUNOMIDE. [Concomitant]
     Active Substance: LEFLUNOMIDE
     Dosage: BETWEEN 10 MG EVERY OTHER DAY AND 20 MG PER DAY
     Route: 065

REACTIONS (6)
  - Drug specific antibody present [Unknown]
  - Uveitis [Unknown]
  - Arthritis [Unknown]
  - Off label use [Unknown]
  - Product use in unapproved indication [Unknown]
  - Infusion related reaction [Unknown]
